FAERS Safety Report 12858098 (Version 4)
Quarter: 2019Q4

REPORT INFORMATION
  Report Type: Spontaneous
  Country: US (occurrence: US)
  Receive Date: 20161018
  Receipt Date: 20191008
  Transmission Date: 20200122
  Serious: Yes (Other)
  Sender: FDA-Public Use
  Company Number: US-SA-2016SA080383

PATIENT

DRUGS (1)
  1. LEMTRADA [Suspect]
     Active Substance: ALEMTUZUMAB
     Dosage: UNK UNK,UNK
     Route: 041

REACTIONS (4)
  - Systemic lupus erythematosus [Unknown]
  - Tachycardia [Unknown]
  - Glomerulonephritis [Unknown]
  - Blood creatinine abnormal [Unknown]
